FAERS Safety Report 9182418 (Version 1)
Quarter: 2013Q1

REPORT INFORMATION
  Report Type: Spontaneous
  Country: US (occurrence: US)
  Receive Date: 20130322
  Receipt Date: 20130322
  Transmission Date: 20140127
  Serious: Yes (Hospitalization)
  Sender: FDA-Public Use
  Company Number: US-BAYER-2013-035313

PATIENT
  Age: 34 Year
  Sex: Female

DRUGS (6)
  1. YAZ [Suspect]
  2. GIANVI [Suspect]
  3. OCELLA [Suspect]
  4. MELATONIN [Concomitant]
     Dosage: 5 MGS- TAKE 2 AT BEDTIME
     Route: 048
  5. AUGMENTIN [Concomitant]
     Dosage: 875-125 MG. TAE 1 TABLET DAILY
     Route: 048
  6. AMBIEN [Concomitant]
     Dosage: 10 MG, 1 TABLET NIGHTLY AS NEEDED
     Route: 048

REACTIONS (1)
  - Pulmonary embolism [None]
